FAERS Safety Report 8241857-6 (Version None)
Quarter: 2012Q1

REPORT INFORMATION
  Report Type: 
  Country: None (occurrence: None)
  Receive Date: 20120328
  Receipt Date: 20120314
  Transmission Date: 20120608
  Serious: Yes (Hospitalization, Other)
  Sender: FDA-Public Use
  Company Number: US-MYLANLABS-2012S1006307

PATIENT
  Sex: Male
  Weight: 106.19 kg

DRUGS (22)
  1. CAPTOPRIL [Concomitant]
  2. HEPARIN [Concomitant]
  3. NEURONTIN [Concomitant]
  4. DIGOXIN [Suspect]
     Route: 048
     Dates: start: 20000110, end: 20090731
  5. CLONIDINE [Concomitant]
     Route: 062
  6. POTASSIUM CHLORIDE [Concomitant]
  7. ACETAMINOPHEN [Concomitant]
  8. NITROGLYCERIN [Concomitant]
  9. MOBIC [Concomitant]
  10. LASIX [Concomitant]
  11. MINOXIDIL [Concomitant]
  12. ASPIRIN [Concomitant]
  13. LISINOPRIL [Concomitant]
  14. COREG [Concomitant]
  15. PROMETHAZINE [Concomitant]
     Dosage: 25MG/ML
     Route: 058
  16. NICORETTE /01033301/ [Concomitant]
  17. VICODIN [Concomitant]
  18. SEROQUEL [Concomitant]
  19. CHANTIX [Concomitant]
  20. NORVASC [Concomitant]
  21. BUPROPION HCL [Concomitant]
  22. TRICOR [Concomitant]

REACTIONS (85)
  - AORTIC ANEURYSM [None]
  - LEFT VENTRICULAR HYPERTROPHY [None]
  - PULMONARY OEDEMA [None]
  - ARTHRALGIA [None]
  - ASTHENIA [None]
  - BRONCHITIS [None]
  - CATHETERISATION CARDIAC ABNORMAL [None]
  - COMPUTERISED TOMOGRAM ABNORMAL [None]
  - CONDITION AGGRAVATED [None]
  - DENTAL CARIES [None]
  - DYSPNOEA PAROXYSMAL NOCTURNAL [None]
  - ELECTROCARDIOGRAM ABNORMAL [None]
  - OEDEMA PERIPHERAL [None]
  - PALPITATIONS [None]
  - PYREXIA [None]
  - TACHYCARDIA [None]
  - UPPER RESPIRATORY TRACT INFECTION [None]
  - VENTRICULAR EXTRASYSTOLES [None]
  - DYSPNOEA [None]
  - PULMONARY HYPERTENSION [None]
  - AORTOGRAM ABNORMAL [None]
  - CHILLS [None]
  - DYSURIA [None]
  - ERECTILE DYSFUNCTION [None]
  - HAEMORRHOIDS [None]
  - HYPOAESTHESIA [None]
  - NECK PAIN [None]
  - PAIN [None]
  - PAIN IN EXTREMITY [None]
  - PRODUCTIVE COUGH [None]
  - VISION BLURRED [None]
  - SYNCOPE [None]
  - AORTIC DILATATION [None]
  - CONTUSION [None]
  - FATIGUE [None]
  - HEAD INJURY [None]
  - HYPERTENSION [None]
  - ILL-DEFINED DISORDER [None]
  - MUSCULAR WEAKNESS [None]
  - NAUSEA [None]
  - NERVOUSNESS [None]
  - RENAL DISORDER [None]
  - ABDOMINAL PAIN UPPER [None]
  - AORTIC DISSECTION [None]
  - BACK PAIN [None]
  - CARDIAC MURMUR [None]
  - DIZZINESS [None]
  - TREATMENT NONCOMPLIANCE [None]
  - CARDIAC FAILURE CONGESTIVE [None]
  - OEDEMA [None]
  - ANXIETY [None]
  - AORTIC VALVE INCOMPETENCE [None]
  - ARTERIOGRAM CORONARY ABNORMAL [None]
  - ATELECTASIS [None]
  - CHEST DISCOMFORT [None]
  - EJECTION FRACTION DECREASED [None]
  - HEADACHE [None]
  - TOOTH DISORDER [None]
  - VERTIGO [None]
  - ATRIOVENTRICULAR BLOCK FIRST DEGREE [None]
  - CARDIAC STRESS TEST ABNORMAL [None]
  - CENTRAL OBESITY [None]
  - FLUID OVERLOAD [None]
  - MYOPATHY [None]
  - ORTHOPNOEA [None]
  - OROPHARYNGEAL PAIN [None]
  - RALES [None]
  - PERICARDIAL EFFUSION [None]
  - CHEST X-RAY ABNORMAL [None]
  - ECHOCARDIOGRAM ABNORMAL [None]
  - HYPERHIDROSIS [None]
  - NASAL OEDEMA [None]
  - PHYSICAL ASSAULT [None]
  - WEIGHT DECREASED [None]
  - CONGESTIVE CARDIOMYOPATHY [None]
  - CARDIOACTIVE DRUG LEVEL DECREASED [None]
  - DRUG ABUSE [None]
  - DYSPNOEA EXERTIONAL [None]
  - GAIT DISTURBANCE [None]
  - MEMORY IMPAIRMENT [None]
  - MUSCLE SPASMS [None]
  - ONYCHOMYCOSIS [None]
  - PLEURITIC PAIN [None]
  - PNEUMONIA [None]
  - RESPIRATORY TRACT CONGESTION [None]
